FAERS Safety Report 16775285 (Version 1)
Quarter: 2019Q3

REPORT INFORMATION
  Report Type: Spontaneous
  Country: DE (occurrence: DE)
  Receive Date: 20190905
  Receipt Date: 20190905
  Transmission Date: 20191005
  Serious: Yes (Other)
  Sender: FDA-Public Use
  Company Number: PHHY2019DE201742

PATIENT
  Sex: Male

DRUGS (10)
  1. PARACETAMOL [Suspect]
     Active Substance: ACETAMINOPHEN
     Indication: FOETAL EXPOSURE DURING PREGNANCY
     Dosage: MATERNAL DESCRIPTION: GW 27+4 UNTIL GW 27+6, 2ND AND 3RD TRIMESTER
     Route: 064
  2. ACICLOVIR [Suspect]
     Active Substance: ACYCLOVIR
     Indication: FOETAL EXPOSURE DURING PREGNANCY
     Dosage: MATERNAL DESCRIPTION: 2ND TRIMESTER
     Route: 064
  3. DAUNORUBICIN [Suspect]
     Active Substance: DAUNORUBICIN
     Indication: FOETAL EXPOSURE DURING PREGNANCY
     Dosage: MATERNAL DESCRIPTION: 2ND AND 3RD TRIMESTER
     Route: 064
  4. METOCLOPRAMIDE. [Suspect]
     Active Substance: METOCLOPRAMIDE
     Indication: FOETAL EXPOSURE DURING PREGNANCY
     Dosage: MATERNAL DESCRIPTION: 2ND AND 3RD TRIMESTER
     Route: 064
  5. CYTARABINE. [Suspect]
     Active Substance: CYTARABINE
     Indication: FOETAL EXPOSURE DURING PREGNANCY
     Dosage: MATERNAL DESCRIPTION: 2ND AND 3RD TRIMESTER
     Route: 064
  6. AMPHOTERICIN B. [Suspect]
     Active Substance: AMPHOTERICIN B
     Indication: FOETAL EXPOSURE DURING PREGNANCY
     Dosage: MATERNAL DESCRIPTION: 2ND AND 3RD TRIMESTER
     Route: 065
  7. PARACETAMOL [Suspect]
     Active Substance: ACETAMINOPHEN
     Dosage: MATERNAL DESCRIPTION: GW 17+1 UNTIL GW 18+0
     Route: 065
  8. PIPERACILLIN. [Suspect]
     Active Substance: PIPERACILLIN SODIUM
     Indication: FOETAL EXPOSURE DURING PREGNANCY
     Dosage: MATERNAL DESCRIPTION: 3RD TRIMESTER
     Route: 064
  9. TAZOBACTAM [Suspect]
     Active Substance: TAZOBACTAM
     Indication: FOETAL EXPOSURE DURING PREGNANCY
     Dosage: MATERNAL DESCRIPTION: 3RD TRIMESTER
     Route: 064
  10. CEFUROXIME. [Suspect]
     Active Substance: CEFUROXIME
     Indication: FOETAL EXPOSURE DURING PREGNANCY
     Dosage: MATERNAL DESCRIPTION: 2ND TRIMESTER
     Route: 064

REACTIONS (4)
  - Patent ductus arteriosus [Unknown]
  - Ventricular septal defect [Unknown]
  - Congenital pneumonia [Unknown]
  - Premature baby [Unknown]
